FAERS Safety Report 8119305-6 (Version None)
Quarter: 2012Q1

REPORT INFORMATION
  Report Type: 
  Country: None (occurrence: None)
  Receive Date: 20120207
  Receipt Date: 20120123
  Transmission Date: 20120608
  Serious: Yes (Death, Other)
  Sender: FDA-Public Use
  Company Number: US-JUTA GMBH-2012-01599

PATIENT
  Age: 54 Year
  Sex: Male

DRUGS (5)
  1. CLINDAMYCIN HCL [Suspect]
     Indication: TOXOPLASMOSIS
     Dosage: UNK
     Route: 065
  2. DEXAMETHASONE [Suspect]
     Indication: BRAIN OEDEMA
     Dosage: UNK
     Route: 065
  3. ATOVAQUONE [Suspect]
  4. PYRIMETHAMINE TAB [Suspect]
     Indication: TOXOPLASMOSIS
  5. DAPSONE [Suspect]
     Indication: ANTIFUNGAL PROPHYLAXIS

REACTIONS (2)
  - ZYGOMYCOSIS [None]
  - PANCYTOPENIA [None]
